FAERS Safety Report 9343996 (Version 2)
Quarter: 2013Q3

REPORT INFORMATION
  Report Type: Spontaneous
  Country: US (occurrence: US)
  Receive Date: 20130612
  Receipt Date: 20130702
  Transmission Date: 20140515
  Serious: Yes (Other)
  Sender: FDA-Public Use
  Company Number: US-PFIZER INC-2013172524

PATIENT
  Age: 42 Year
  Sex: Male

DRUGS (1)
  1. CARDURA [Suspect]
     Dosage: 2 MG, 1X/DAY

REACTIONS (1)
  - Blood glucose decreased [Unknown]
